FAERS Safety Report 15879273 (Version 2)
Quarter: 2019Q1

REPORT INFORMATION
  Report Type: Spontaneous
  Country: US (occurrence: US)
  Receive Date: 20190128
  Receipt Date: 20190315
  Transmission Date: 20190417
  Serious: No
  Sender: FDA-Public Use
  Company Number: US-TEVA-2019-US-1005818

PATIENT
  Age: 60 Year
  Sex: Female

DRUGS (1)
  1. AJOVY [Suspect]
     Active Substance: FREMANEZUMAB-VFRM
     Dates: start: 20190123

REACTIONS (4)
  - Paraesthesia oral [Unknown]
  - Hypersensitivity [Unknown]
  - Erythema [Unknown]
  - Swelling face [Unknown]

NARRATIVE: CASE EVENT DATE: 20190123
